FAERS Safety Report 6817903-0 (Version None)
Quarter: 2010Q3

REPORT INFORMATION
  Report Type: 
  Country: None (occurrence: None)
  Receive Date: 20100706
  Receipt Date: 20100624
  Transmission Date: 20110219
  Serious: Yes (Other)
  Sender: FDA-Public Use
  Company Number: US-PFIZER INC-2010056467

PATIENT
  Sex: Female
  Weight: 62.132 kg

DRUGS (4)
  1. LYRICA [Suspect]
     Indication: NEUROLOGICAL SYMPTOM
     Dosage: 25-50 MG TWICE DAILY
     Dates: start: 20080519, end: 20080806
  2. LYRICA [Suspect]
     Indication: BACK PAIN
  3. LYRICA [Suspect]
     Indication: NEURALGIA
  4. METHADONE [Concomitant]
     Dosage: 40 MG, 4X/DAY

REACTIONS (5)
  - ALTERED STATE OF CONSCIOUSNESS [None]
  - CONVULSION [None]
  - LOSS OF CONSCIOUSNESS [None]
  - MUSCULAR WEAKNESS [None]
  - SOMNOLENCE [None]
